FAERS Safety Report 15999612 (Version 1)
Quarter: 2019Q1

REPORT INFORMATION
  Report Type: Spontaneous
  Country: US (occurrence: US)
  Receive Date: 20190223
  Receipt Date: 20190223
  Transmission Date: 20190418
  Serious: Yes (Hospitalization)
  Sender: FDA-Public Use
  Company Number: None

PATIENT
  Age: 26 Year
  Sex: Male
  Weight: 118.62 kg

DRUGS (3)
  1. KRYSTEXXA [Suspect]
     Active Substance: PEGLOTICASE
     Indication: GOUT
     Dosage: ?          OTHER FREQUENCY:EVERY 2 WEEKS;?
     Route: 041
     Dates: start: 20190209, end: 20190223
  2. BENADRYL 25GM IV [Concomitant]
     Dates: start: 20190209, end: 20190223
  3. SOLUMEDROL 125MG IV [Concomitant]
     Dates: start: 20190209, end: 20190223

REACTIONS (5)
  - Abdominal pain [None]
  - Hypertension [None]
  - Anxiety [None]
  - Hyperhidrosis [None]
  - Flushing [None]

NARRATIVE: CASE EVENT DATE: 20190223
